FAERS Safety Report 6142989-9 (Version None)
Quarter: 2009Q2

REPORT INFORMATION
  Report Type: 
  Country: None (occurrence: None)
  Receive Date: 20090403
  Receipt Date: 20090320
  Transmission Date: 20091009
  Serious: Yes (Life-Threatening, Hospitalization, Disabling, Other)
  Sender: FDA-Public Use
  Company Number: US-ROCHE-384554

PATIENT
  Sex: Female
  Weight: 72.6 kg

DRUGS (7)
  1. ACCUTANE [Suspect]
     Dosage: DOSAGE REGIMEN: EVERY DAY.
     Route: 048
     Dates: start: 19991206, end: 20000501
  2. ACCUTANE [Suspect]
     Route: 048
     Dates: start: 20011120
  3. COUMADIN [Suspect]
     Indication: THROMBOSIS PROPHYLAXIS
     Route: 065
     Dates: start: 20050101, end: 20060101
  4. COUMADIN [Suspect]
     Route: 065
     Dates: start: 20060101
  5. MINOCYCLINE HCL [Concomitant]
     Route: 048
     Dates: start: 19991206
  6. ORTHO CYCLEN-28 [Concomitant]
     Dosage: DRUG NAME REPORTED AS ORTHO TRI-CYCLEN
     Route: 048
  7. YASMIN [Concomitant]
     Route: 048

REACTIONS (31)
  - ADJUSTMENT DISORDER [None]
  - ANAEMIA [None]
  - ANXIETY [None]
  - BIPOLAR DISORDER [None]
  - COAGULOPATHY [None]
  - COLITIS [None]
  - COLITIS ULCERATIVE [None]
  - CROHN'S DISEASE [None]
  - DEPRESSION [None]
  - DRY SKIN [None]
  - ECZEMA [None]
  - FACTOR V LEIDEN MUTATION [None]
  - FIBROMYALGIA [None]
  - GASTROENTERITIS [None]
  - GASTROINTESTINAL DISORDER [None]
  - INFLAMMATORY BOWEL DISEASE [None]
  - INTENTIONAL SELF-INJURY [None]
  - INTERNAL INJURY [None]
  - INTERVERTEBRAL DISC DEGENERATION [None]
  - INTESTINAL HAEMORRHAGE [None]
  - IRRITABLE BOWEL SYNDROME [None]
  - MENOMETRORRHAGIA [None]
  - MIGRAINE [None]
  - PERSONALITY DISORDER [None]
  - PHOTOSENSITIVITY REACTION [None]
  - RECTAL HAEMORRHAGE [None]
  - SCOLIOSIS [None]
  - SUICIDAL IDEATION [None]
  - SUICIDE ATTEMPT [None]
  - TENDERNESS [None]
  - THROMBOSIS [None]
